FAERS Safety Report 10307800 (Version 1)
Quarter: 2014Q3

REPORT INFORMATION
  Report Type: Spontaneous
  Country: US (occurrence: None)
  Receive Date: 20140714
  Receipt Date: 20140714
  Transmission Date: 20150326
  Serious: No
  Sender: FDA-Public Use
  Company Number: None

PATIENT
  Age: 46 Year
  Sex: Male

DRUGS (5)
  1. LAMICTAL [Suspect]
     Active Substance: LAMOTRIGINE
     Dates: start: 20130423, end: 20130502
  2. DEPAKOTE [Concomitant]
     Active Substance: DIVALPROEX SODIUM
  3. JANUVIA [Concomitant]
     Active Substance: SITAGLIPTIN PHOSPHATE
  4. PRAVACHOL [Concomitant]
     Active Substance: PRAVASTATIN SODIUM
  5. TRILEPTAL [Concomitant]
     Active Substance: OXCARBAZEPINE

REACTIONS (5)
  - Hepatic steatosis [None]
  - Antinuclear antibody positive [None]
  - Drug-induced liver injury [None]
  - Smooth muscle antibody positive [None]
  - Hepatitis acute [None]

NARRATIVE: CASE EVENT DATE: 20130501
